FAERS Safety Report 7801699-X (Version None)
Quarter: 2011Q4

REPORT INFORMATION
  Report Type: 
  Country: None (occurrence: None)
  Receive Date: 20111007
  Receipt Date: 20110926
  Transmission Date: 20120403
  Serious: Yes (Hospitalization, Other)
  Sender: FDA-Public Use
  Company Number: US-ELI_LILLY_AND_COMPANY-US201108008130

PATIENT
  Sex: Male

DRUGS (2)
  1. FORTEO [Suspect]
     Indication: OSTEOPOROSIS
     Dosage: 20 UG, QD
     Route: 058
     Dates: start: 20110626
  2. FORTEO [Suspect]
     Dosage: 20 UG, QD
     Route: 058

REACTIONS (22)
  - PERICARDIAL EFFUSION [None]
  - ASTHENIA [None]
  - PAIN [None]
  - BACK PAIN [None]
  - APATHY [None]
  - DYSPNOEA [None]
  - CONFUSIONAL STATE [None]
  - FATIGUE [None]
  - SOMNOLENCE [None]
  - TOOTH DISORDER [None]
  - INCOHERENT [None]
  - PULMONARY OEDEMA [None]
  - MUSCLE STRAIN [None]
  - ANAEMIA [None]
  - OEDEMA PERIPHERAL [None]
  - TOOTH FRACTURE [None]
  - MOVEMENT DISORDER [None]
  - DEHYDRATION [None]
  - TOOTH DISCOLOURATION [None]
  - FALL [None]
  - DIARRHOEA [None]
  - DEPRESSION [None]
